FAERS Safety Report 5426092-9 (Version None)
Quarter: 2007Q3

REPORT INFORMATION
  Report Type: 
  Country: None (occurrence: None)
  Receive Date: 20070823
  Receipt Date: 20070823
  Transmission Date: 20080115
  Serious: Yes (Life-Threatening)
  Sender: FDA-Public Use
  Company Number: None

PATIENT
  Age: 55 Year
  Sex: Male
  Weight: 104 kg

DRUGS (7)
  1. SUNITINIB 50 MG PO DAILY [Suspect]
     Indication: TRANSITIONAL CELL CANCER OF RENAL PELVIS AND URETER METASTATIC
     Dosage: 50MG PO DAILY
     Route: 048
     Dates: start: 20070301
  2. LEVOTHYROXINE SODIUM [Concomitant]
  3. FENTANYL TRANSDERMAL PATCH [Concomitant]
  4. SIMVASTATIN [Concomitant]
  5. DOCUSATE [Concomitant]
  6. SENNA [Concomitant]
  7. LATANOPROST [Concomitant]

REACTIONS (3)
  - CARDIAC FAILURE CONGESTIVE [None]
  - EJECTION FRACTION DECREASED [None]
  - PULMONARY EMBOLISM [None]
